FAERS Safety Report 5974698-0 (Version None)
Quarter: 2008Q4

REPORT INFORMATION
  Report Type: 
  Country: None (occurrence: None)
  Receive Date: 20081201
  Receipt Date: 20081125
  Transmission Date: 20090506
  Serious: Yes (Hospitalization)
  Sender: FDA-Public Use
  Company Number: FR-PFIZER INC-2008100323

PATIENT
  Sex: Male

DRUGS (2)
  1. LYRICA [Suspect]
     Route: 048
     Dates: start: 20081001, end: 20081015
  2. IMUREL [Suspect]
     Indication: MUSCULAR WEAKNESS
     Route: 048
     Dates: start: 20080808, end: 20081015

REACTIONS (2)
  - AGRANULOCYTOSIS [None]
  - PYREXIA [None]
